FAERS Safety Report 11756019 (Version 3)
Quarter: 2015Q4

REPORT INFORMATION
  Report Type: Spontaneous
  Country: CH (occurrence: CH)
  Receive Date: 20151119
  Receipt Date: 20151201
  Transmission Date: 20160304
  Serious: Yes (Death, Life-Threatening, Other)
  Sender: FDA-Public Use
  Company Number: CH-PFIZER INC-2015396761

PATIENT
  Age: 95 Year
  Sex: Female
  Weight: 63 kg

DRUGS (28)
  1. ASPIRIN CARDIO [Suspect]
     Active Substance: ASPIRIN
     Indication: INFARCTION
     Dosage: 100 MG, 1X/DAY
     Route: 048
  2. REMERON [Suspect]
     Active Substance: MIRTAZAPINE
     Indication: INSOMNIA
     Dosage: MAXIMUM 0.5, DAILY
     Route: 048
  3. SEROQUEL [Suspect]
     Active Substance: QUETIAPINE FUMARATE
     Indication: RESTLESSNESS
     Dosage: 25 MG, 1X/DAY
     Route: 048
     Dates: end: 20151028
  4. TOREM /01036501/ [Concomitant]
     Active Substance: TORSEMIDE
     Dosage: UNK
  5. FEIGENSIRUP [Concomitant]
     Dosage: UNK
  6. PRIMOFENAC [Concomitant]
     Dosage: 1 DF, 2X/DAY
  7. NITRODERM [Concomitant]
     Active Substance: NITROGLYCERIN
     Dosage: 1 DF, UNK
  8. LAXOBERON [Concomitant]
     Active Substance: SODIUM PICOSULFATE
     Dosage: UNK
  9. ASPIRIN CARDIO [Suspect]
     Active Substance: ASPIRIN
     Indication: PROPHYLAXIS
  10. TRAMADOL. [Concomitant]
     Active Substance: TRAMADOL
     Dosage: UNK
  11. VALVERDE SCHLAF [Concomitant]
     Dosage: 2 DF, DAILY
  12. PANTOZOL [Suspect]
     Active Substance: PANTOPRAZOLE SODIUM
     Dosage: 20 MG, DAILY
     Route: 048
  13. ATACAND [Suspect]
     Active Substance: CANDESARTAN CILEXETIL
     Indication: CARDIAC FAILURE
     Dosage: 16 MG, 1X/DAY
     Route: 048
  14. PARACETAMOL GRUNENTHAL [Suspect]
     Active Substance: ACETAMINOPHEN
     Indication: PAIN
     Dosage: 1 G, 2X/DAY
     Route: 048
  15. MARCOUMAR [Concomitant]
     Active Substance: PHENPROCOUMON
     Dosage: UNK
  16. METO ZEROK [Concomitant]
     Active Substance: METOPROLOL SUCCINATE
     Dosage: UNK
  17. NEURONTIN [Suspect]
     Active Substance: GABAPENTIN
     Indication: PAIN
     Dosage: 300 MG, 2X/DAY
     Route: 048
     Dates: end: 20151028
  18. AUGMENTIN [Suspect]
     Active Substance: AMOXICILLIN\CLAVULANATE POTASSIUM
     Indication: CHOLECYSTITIS
     Dosage: 1 DF, 2X/DAY
     Route: 048
     Dates: start: 20151025
  19. VI-DE 3 [Concomitant]
     Active Substance: CHOLECALCIFEROL
     Dosage: UNK
  20. DIGOXIN SANDOZ [Suspect]
     Active Substance: DIGOXIN
     Indication: CARDIAC FAILURE
     Dosage: 0.25 MG, QOD
     Route: 048
  21. PRIMPERAN [Suspect]
     Active Substance: METOCLOPRAMIDE HYDROCHLORIDE
     Indication: NAUSEA
     Dosage: 10 MG, QID
     Route: 048
  22. EUTHYROX [Concomitant]
     Active Substance: LEVOTHYROXINE SODIUM
     Dosage: UNK
  23. ATACAND [Suspect]
     Active Substance: CANDESARTAN CILEXETIL
     Indication: CARDIAC FAILURE
  24. DIGOXIN SANDOZ [Suspect]
     Active Substance: DIGOXIN
     Indication: CARDIAC FAILURE
  25. ZALDIAR [Suspect]
     Active Substance: ACETAMINOPHEN\TRAMADOL HYDROCHLORIDE
     Indication: PAIN
     Dosage: UNK UNK, 2X/DAY
     Route: 048
  26. NOVALGIN [Suspect]
     Active Substance: METAMIZOLE SODIUM
     Indication: PAIN
     Dosage: UNK
     Route: 048
     Dates: start: 20151014, end: 20151028
  27. KYTTA SALBE [Concomitant]
     Dosage: 1 DF, 2X/DAY
  28. MOVICOL [Concomitant]
     Active Substance: POLYETHYLENE GLYCOL 3350\POTASSIUM CHLORIDE\SODIUM BICARBONATE\SODIUM CHLORIDE
     Dosage: 1 DF, UNK

REACTIONS (9)
  - Agranulocytosis [Fatal]
  - Abdominal pain upper [Unknown]
  - Constipation [Unknown]
  - Spinal osteoarthritis [Unknown]
  - Nausea [Unknown]
  - Decreased appetite [Unknown]
  - Pulmonary sepsis [Fatal]
  - Pneumonia [Fatal]
  - Coma [Unknown]

NARRATIVE: CASE EVENT DATE: 20151025
